FAERS Safety Report 8175304-X (Version None)
Quarter: 2012Q1

REPORT INFORMATION
  Report Type: 
  Country: None (occurrence: None)
  Receive Date: 20120229
  Receipt Date: 20120223
  Transmission Date: 20120608
  Serious: Yes (Hospitalization)
  Sender: FDA-Public Use
  Company Number: PHHY2011NL28407

PATIENT
  Sex: Female
  Weight: 56 kg

DRUGS (5)
  1. SUMATRIPTAN [Concomitant]
     Dosage: 5 MG, UNK
  2. MICARDIS [Concomitant]
     Dosage: 80 MG, 1DD1
  3. CAL-500-D [Concomitant]
     Dosage: 800 IE, ONCE DAILY
  4. ZOLEDRONOC ACID [Suspect]
     Indication: OSTEOPOROSIS
     Dosage: 5 MG\100 ML ONCE PER 364 DAYS
     Route: 042
     Dates: start: 20110304
  5. ZOLEDRONOC ACID [Suspect]
     Dosage: 5 MG/100ML
     Route: 042
     Dates: start: 20120223

REACTIONS (3)
  - BONE PAIN [None]
  - MIGRAINE [None]
  - MUSCULOSKELETAL PAIN [None]
